FAERS Safety Report 4703533-3 (Version None)
Quarter: 2005Q2

REPORT INFORMATION
  Report Type: 
  Country: None (occurrence: None)
  Receive Date: 20050628
  Receipt Date: 20050615
  Transmission Date: 20051028
  Serious: Yes (Hospitalization, Other)
  Sender: FDA-Public Use
  Company Number: 2005062961

PATIENT
  Sex: Male
  Weight: 100.2449 kg

DRUGS (10)
  1. BEXTRA [Suspect]
     Indication: PSORIATIC ARTHROPATHY
     Dosage: 10 MG (10 MG, 1 IN 1 D), ORAL
     Route: 048
     Dates: start: 20040426, end: 20041216
  2. BEXTRA [Suspect]
     Indication: PSORIATIC ARTHROPATHY
     Dosage: 10 MG (10 MG, 1 IN 1 D), ORAL
     Route: 048
     Dates: start: 20040426
  3. PERCOCET (OXYCODONE HYDROCHLORIDE, PARACEAMOL) [Concomitant]
  4. LIPITOR [Concomitant]
  5. MERIDIA [Concomitant]
  6. VALIUM [Concomitant]
  7. TYLENOL W/ CODEINE [Concomitant]
  8. PRED-FORTE (PREDNISOLONE ACETATE) [Concomitant]
  9. PREDNISONE [Concomitant]
  10. FIORICET [Concomitant]

REACTIONS (2)
  - HERNIA [None]
  - MALIGNANT MELANOMA [None]
